FAERS Safety Report 13647283 (Version 1)
Quarter: 2017Q2

REPORT INFORMATION
  Report Type: Spontaneous
  Country: US (occurrence: US)
  Receive Date: 20170613
  Receipt Date: 20170613
  Transmission Date: 20170830
  Serious: Yes (Life-Threatening, Hospitalization)
  Sender: FDA-Public Use
  Company Number: None

PATIENT
  Age: 35 Year
  Sex: Female
  Weight: 93.15 kg

DRUGS (7)
  1. PROAIR HFA [Concomitant]
     Active Substance: ALBUTEROL SULFATE
  2. TYLENOL [Concomitant]
     Active Substance: ACETAMINOPHEN
  3. MIDOL [Concomitant]
     Active Substance: IBUPROFEN
  4. LARSARTEN [Concomitant]
  5. PROGESTERONE. [Suspect]
     Active Substance: PROGESTERONE
     Indication: CERVICAL INCOMPETENCE
     Dosage: ?          QUANTITY:30 CAPSULE(S);?AT BEDTIME VAGINAL
     Route: 067
  6. LOVENOX [Concomitant]
     Active Substance: ENOXAPARIN SODIUM
  7. METFORMIN [Concomitant]
     Active Substance: METFORMIN HYDROCHLORIDE

REACTIONS (8)
  - Abdominal distension [None]
  - Muscle spasms [None]
  - Abortion [None]
  - Headache [None]
  - Breast pain [None]
  - Breast tenderness [None]
  - Haemorrhage [None]
  - Premature labour [None]

NARRATIVE: CASE EVENT DATE: 20170603
